FAERS Safety Report 6426375-X (Version None)
Quarter: 2009Q4

REPORT INFORMATION
  Report Type: 
  Country: None (occurrence: None)
  Receive Date: 20091014
  Receipt Date: 20090305
  Transmission Date: 20100525
  Serious: Yes (Hospitalization)
  Sender: FDA-Public Use
  Company Number: 2009RR-22174

PATIENT
  Age: 59 Year
  Sex: Female

DRUGS (1)
  1. ENALAPRIL MALEATE [Suspect]

REACTIONS (1)
  - ANGIOEDEMA [None]
